FAERS Safety Report 13803302 (Version 2)
Quarter: 2017Q3

REPORT INFORMATION
  Report Type: Report from Study
  Country: DE (occurrence: DE)
  Receive Date: 20170728
  Receipt Date: 20170831
  Transmission Date: 20171127
  Serious: Yes (Hospitalization)
  Sender: FDA-Public Use
  Company Number: DE-ROCHE-1970160

PATIENT
  Sex: Male
  Weight: 110 kg

DRUGS (9)
  1. RANIBIZUMAB. [Suspect]
     Active Substance: RANIBIZUMAB
     Route: 031
     Dates: start: 20160322
  2. RANIBIZUMAB. [Suspect]
     Active Substance: RANIBIZUMAB
     Route: 031
     Dates: start: 20160802
  3. RANIBIZUMAB. [Suspect]
     Active Substance: RANIBIZUMAB
     Route: 031
     Dates: start: 20160105
  4. RANIBIZUMAB. [Suspect]
     Active Substance: RANIBIZUMAB
     Route: 031
     Dates: start: 20160202
  5. RANIBIZUMAB. [Suspect]
     Active Substance: RANIBIZUMAB
     Indication: NEOVASCULAR AGE-RELATED MACULAR DEGENERATION
     Route: 031
     Dates: start: 20151201
  6. RANIBIZUMAB. [Suspect]
     Active Substance: RANIBIZUMAB
     Route: 031
     Dates: start: 20170411
  7. RANIBIZUMAB. [Suspect]
     Active Substance: RANIBIZUMAB
     Route: 031
     Dates: start: 20161017
  8. RANIBIZUMAB. [Suspect]
     Active Substance: RANIBIZUMAB
     Route: 031
     Dates: start: 20170307
  9. RANIBIZUMAB. [Suspect]
     Active Substance: RANIBIZUMAB
     Route: 031
     Dates: start: 20160909

REACTIONS (1)
  - Cerebrovascular accident [Unknown]

NARRATIVE: CASE EVENT DATE: 20170503
